FAERS Safety Report 9772503 (Version 1)
Quarter: 2013Q4

REPORT INFORMATION
  Report Type: Spontaneous
  Country: US (occurrence: None)
  Receive Date: 20131218
  Receipt Date: 20131218
  Transmission Date: 20140711
  Serious: Yes (Other)
  Sender: FDA-Public Use
  Company Number: 2013CT000080

PATIENT
  Age: 51 Year
  Sex: Female
  Weight: 77.11 kg

DRUGS (3)
  1. KORLYM [Suspect]
     Indication: CUSHING^S SYNDROME
     Route: 048
     Dates: start: 20130727
  2. METFORMIN [Concomitant]
  3. KETO [Concomitant]

REACTIONS (5)
  - Nausea [None]
  - Pain in extremity [None]
  - Weight increased [None]
  - Decreased appetite [None]
  - Oedema peripheral [None]
